FAERS Safety Report 4322572-8 (Version None)
Quarter: 2004Q1

REPORT INFORMATION
  Report Type: 
  Country: None (occurrence: None)
  Receive Date: 20040319
  Receipt Date: 20040309
  Transmission Date: 20041129
  Serious: Yes (Hospitalization)
  Sender: FDA-Public Use
  Company Number: CIP04000511

PATIENT
  Age: 75 Year
  Sex: Female

DRUGS (4)
  1. BENET (RISEDRONATE SODIUM) TABLET, 2.5MG [Suspect]
     Indication: OSTEOPOROSIS
     Dosage: 2.5MG DAILY, ORAL
     Route: 048
     Dates: end: 20040201
  2. ELCITONIN (ELCATONIN) INJECTION [Suspect]
     Indication: OSTEOPOROSIS
     Dosage: INTRAMUSCULAR
     Route: 030
     Dates: end: 20040201
  3. AMLODIPINE BESYLATE [Concomitant]
  4. NITRODERM [Concomitant]

REACTIONS (1)
  - INTERSTITIAL LUNG DISEASE [None]
